FAERS Safety Report 6571408-3 (Version None)
Quarter: 2010Q1

REPORT INFORMATION
  Report Type: 
  Country: None (occurrence: None)
  Receive Date: 20100205
  Receipt Date: 20100127
  Transmission Date: 20100710
  Serious: Yes (Hospitalization)
  Sender: FDA-Public Use
  Company Number: US-PFIZER INC-2010012138

PATIENT
  Sex: Male
  Weight: 78.9 kg

DRUGS (3)
  1. SUTENT [Suspect]
     Indication: RENAL CELL CARCINOMA
     Dosage: 50 MG, 1X/DAY
     Route: 048
     Dates: start: 20090917
  2. SULFAMETHOXAZOLE [Concomitant]
     Indication: RENAL CANCER
     Dates: start: 20100106
  3. TRIMETHOPRIM [Concomitant]
     Indication: RENAL CANCER
     Dates: start: 20100106

REACTIONS (5)
  - BLOOD CALCIUM INCREASED [None]
  - DEHYDRATION [None]
  - DISORIENTATION [None]
  - DIZZINESS [None]
  - HEAT STROKE [None]
